FAERS Safety Report 20514364 (Version 1)
Quarter: 2022Q1

REPORT INFORMATION
  Report Type: Spontaneous
  Country: US (occurrence: US)
  Receive Date: 20220224
  Receipt Date: 20220224
  Transmission Date: 20220423
  Serious: No
  Sender: FDA-Public Use
  Company Number: US-OAKRUM PHARMA-2021OAK00001

PATIENT
  Age: 86 Year
  Sex: Male
  Weight: 73.016 kg

DRUGS (7)
  1. PYRIMETHAMINE [Suspect]
     Active Substance: PYRIMETHAMINE
     Indication: Toxoplasmosis
     Dosage: 8 TABLETS, LOADING DOSE ON DAY 1
     Route: 048
     Dates: start: 20210213, end: 20210213
  2. SULFADIAZINE [Concomitant]
     Active Substance: SULFADIAZINE
  3. LEUCOVORIN [Concomitant]
     Active Substance: LEUCOVORIN
  4. KEPPRA [Concomitant]
     Active Substance: LEVETIRACETAM
  5. SIMVASTATIN [Concomitant]
     Active Substance: SIMVASTATIN
  6. LATANOPROST [Concomitant]
     Active Substance: LATANOPROST
     Route: 047
  7. BRIMONIDINE [Concomitant]
     Active Substance: BRIMONIDINE TARTRATE
     Route: 047

REACTIONS (3)
  - Dyspnoea [Recovered/Resolved]
  - Incoherent [Not Recovered/Not Resolved]
  - Rash [Recovered/Resolved]

NARRATIVE: CASE EVENT DATE: 20210201
